FAERS Safety Report 16972204 (Version 2)
Quarter: 2019Q4

REPORT INFORMATION
  Report Type: Spontaneous
  Country: JP (occurrence: JP)
  Receive Date: 20191029
  Receipt Date: 20191108
  Transmission Date: 20200122
  Serious: Yes (Life-Threatening, Hospitalization, Other)
  Sender: FDA-Public Use
  Company Number: JP-009507513-1910JPN003466J

PATIENT
  Age: 5 Decade
  Sex: Female

DRUGS (1)
  1. KEYTRUDA [Suspect]
     Active Substance: PEMBROLIZUMAB
     Indication: UTERINE CANCER
     Dosage: 200 MILLIGRAM, Q3W
     Route: 041

REACTIONS (3)
  - Sepsis [Not Recovered/Not Resolved]
  - Pneumonia aspiration [Unknown]
  - Brain death [Unknown]

NARRATIVE: CASE EVENT DATE: 2019
